FAERS Safety Report 9780810 (Version 1)
Quarter: 2013Q4

REPORT INFORMATION
  Report Type: Spontaneous
  Country: AU (occurrence: AU)
  Receive Date: 20131224
  Receipt Date: 20131224
  Transmission Date: 20140711
  Serious: Yes (Other)
  Sender: FDA-Public Use
  Company Number: PHHY2013AU150653

PATIENT
  Age: 73 Year
  Sex: Female

DRUGS (2)
  1. AFINITOR [Suspect]
  2. EXEMESTANE [Suspect]

REACTIONS (4)
  - General physical health deterioration [Unknown]
  - Malignant neoplasm progression [Unknown]
  - Pancytopenia [Unknown]
  - Platelet count decreased [Unknown]
